FAERS Safety Report 5918778-4 (Version None)
Quarter: 2008Q4

REPORT INFORMATION
  Report Type: 
  Country: None (occurrence: None)
  Receive Date: 20081015
  Receipt Date: 20081007
  Transmission Date: 20090506
  Serious: Yes (Hospitalization)
  Sender: FDA-Public Use
  Company Number: PHHO2008FR02953

PATIENT
  Sex: Male
  Weight: 82 kg

DRUGS (4)
  1. TASIGNA [Suspect]
     Indication: GASTROINTESTINAL STROMAL TUMOUR
     Dosage: 800 MG,
     Route: 048
     Dates: start: 20071211, end: 20080205
  2. TASIGNA [Suspect]
     Dates: start: 20080207
  3. ALFUZOSIN HYDROCHLORIDE [Concomitant]
  4. DEBRIDAT [Suspect]

REACTIONS (7)
  - ABDOMINAL PAIN [None]
  - ANOREXIA [None]
  - ASTHENIA [None]
  - CONSTIPATION [None]
  - GASTROINTESTINAL TOXICITY [None]
  - GENERAL PHYSICAL CONDITION ABNORMAL [None]
  - SUBILEUS [None]
